FAERS Safety Report 20020772 (Version 1)
Quarter: 2021Q4

REPORT INFORMATION
  Report Type: Spontaneous
  Country: US (occurrence: US)
  Receive Date: 20211101
  Receipt Date: 20211101
  Transmission Date: 20220303
  Serious: Yes (Hospitalization, Other)
  Sender: FDA-Public Use
  Company Number: US-NOVARTISPH-NVSC2021US245520

PATIENT
  Age: 52 Year
  Sex: Female

DRUGS (2)
  1. AMANTADINE [Suspect]
     Active Substance: AMANTADINE
     Indication: Product used for unknown indication
     Dosage: 300 MG, QD
     Route: 065
  2. AMANTADINE [Suspect]
     Active Substance: AMANTADINE
     Dosage: 200 MG, UNKNOWN
     Route: 048

REACTIONS (3)
  - Drug withdrawal syndrome [Recovered/Resolved]
  - Toxicity to various agents [Unknown]
  - Hallucination [Recovered/Resolved]
